FAERS Safety Report 6251347-8 (Version None)
Quarter: 2009Q2

REPORT INFORMATION
  Report Type: 
  Country: None (occurrence: None)
  Receive Date: 20090630
  Receipt Date: 20090622
  Transmission Date: 20091009
  Serious: Yes (Disabling)
  Sender: FDA-Public Use
  Company Number: A0793090A

PATIENT
  Age: 65 Year
  Sex: Female

DRUGS (2)
  1. ADVAIR HFA [Suspect]
     Indication: CHRONIC OBSTRUCTIVE PULMONARY DISEASE
     Dosage: 1PUFF TWICE PER DAY
     Route: 055
     Dates: start: 20060401
  2. ZYRTEC [Concomitant]

REACTIONS (10)
  - ABNORMAL DREAMS [None]
  - COUGH [None]
  - DRUG INEFFECTIVE [None]
  - INCREASED VISCOSITY OF BRONCHIAL SECRETION [None]
  - MIDDLE INSOMNIA [None]
  - OXYGEN SATURATION DECREASED [None]
  - PRODUCT QUALITY ISSUE [None]
  - PRODUCT TASTE ABNORMAL [None]
  - RESTLESSNESS [None]
  - VISUAL IMPAIRMENT [None]
